FAERS Safety Report 20772022 (Version 1)
Quarter: 2022Q2

REPORT INFORMATION
  Report Type: Spontaneous
  Country: DE (occurrence: DE)
  Receive Date: 20220501
  Receipt Date: 20220501
  Transmission Date: 20220720
  Serious: Yes (Other)
  Sender: FDA-Public Use
  Company Number: DE-009507513-2102DEU002885

PATIENT
  Sex: Male

DRUGS (2)
  1. JANUVIA [Suspect]
     Active Substance: SITAGLIPTIN PHOSPHATE
     Indication: Diabetes mellitus
     Dosage: 50 MG, TWICE DAILY
     Route: 048
     Dates: start: 202008, end: 202204
  2. JANUVIA [Suspect]
     Active Substance: SITAGLIPTIN PHOSPHATE
     Dosage: 100 MILLIGRAM, QD
     Dates: start: 202204

REACTIONS (9)
  - Blindness unilateral [Unknown]
  - Ocular hypertension [Unknown]
  - Eye disorder [Unknown]
  - Disturbance in attention [Unknown]
  - Hypertension [Unknown]
  - Dental discomfort [Unknown]
  - Dental caries [Unknown]
  - Frequent bowel movements [Unknown]
  - Inappropriate schedule of product administration [Unknown]

NARRATIVE: CASE EVENT DATE: 20200801
